FAERS Safety Report 6225800-7 (Version None)
Quarter: 2009Q2

REPORT INFORMATION
  Report Type: 
  Country: None (occurrence: None)
  Receive Date: 20090612
  Receipt Date: 20090423
  Transmission Date: 20091009
  Serious: No
  Sender: FDA-Public Use
  Company Number: US-ABBOTT-09P-163-0569940-00

PATIENT
  Sex: Male
  Weight: 74.91 kg

DRUGS (6)
  1. HUMIRA [Suspect]
     Indication: CROHN'S DISEASE
     Route: 058
     Dates: start: 20090419
  2. HUMIRA [Suspect]
     Dosage: SYRINGE
     Route: 058
     Dates: start: 20070101, end: 20090419
  3. PENTESA [Concomitant]
     Indication: DRUG USE FOR UNKNOWN INDICATION
  4. UNKNOWN VITAMINS [Concomitant]
     Indication: DRUG USE FOR UNKNOWN INDICATION
  5. ZYRTEC [Concomitant]
     Indication: HYPERSENSITIVITY
  6. GLUCOSAMINE [Concomitant]
     Indication: ARTHROPATHY

REACTIONS (1)
  - INJECTION SITE PAIN [None]
